FAERS Safety Report 14769437 (Version 2)
Quarter: 2018Q2

REPORT INFORMATION
  Report Type: Spontaneous
  Country: JP (occurrence: JP)
  Receive Date: 20180417
  Receipt Date: 20180524
  Transmission Date: 20180711
  Serious: Yes (Hospitalization)
  Sender: FDA-Public Use
  Company Number: JP-BAYER-2018-073010

PATIENT
  Age: 70 Year
  Sex: Male

DRUGS (3)
  1. XOFIGO [Suspect]
     Active Substance: RADIUM RA-223 DICHLORIDE
     Indication: METASTASES TO BONE
  2. PREDNISOLONE. [Suspect]
     Active Substance: PREDNISOLONE
  3. XOFIGO [Suspect]
     Active Substance: RADIUM RA-223 DICHLORIDE
     Indication: HORMONE-REFRACTORY PROSTATE CANCER
     Dosage: 55KBQ/KG
     Route: 042
     Dates: start: 20180330, end: 20180330

REACTIONS (1)
  - Spinal cord compression [Recovering/Resolving]

NARRATIVE: CASE EVENT DATE: 20180403
